FAERS Safety Report 9508641 (Version 3)
Quarter: 2013Q3

REPORT INFORMATION
  Report Type: Report from Study
  Country: US (occurrence: US)
  Receive Date: 20130909
  Receipt Date: 20130925
  Transmission Date: 20140515
  Serious: Yes (Hospitalization)
  Sender: FDA-Public Use
  Company Number: US-ACTELION-A-NJ2013-85979

PATIENT
  Age: 71 Year
  Sex: Female

DRUGS (15)
  1. TRACLEER [Suspect]
     Indication: PULMONARY ARTERIAL HYPERTENSION
     Dosage: 125 MG, BID
     Route: 048
     Dates: start: 2004
  2. TRACLEER [Suspect]
     Dosage: 62.5 MG, BID
     Route: 048
     Dates: start: 2004, end: 2004
  3. COUMADIN [Concomitant]
  4. ALLOPURINOL [Concomitant]
     Dosage: 300 MG, QD
  5. SPIRIVA [Concomitant]
     Dosage: UNK, QD
  6. ADVAIR [Concomitant]
     Dosage: 250/50 MG, BID
     Dates: start: 2003
  7. PERCOCET [Concomitant]
     Dosage: 7.5 MG, QID
     Dates: start: 2008
  8. VESICARE [Concomitant]
     Dosage: 10 MG, UNK
     Dates: start: 2010
  9. METHOCARBAMOL [Concomitant]
     Dosage: 750 MG, BID PRN
     Dates: start: 2010
  10. LYRICA [Concomitant]
     Dosage: 75 MG, TID
     Dates: start: 2011
  11. POTASSIUM CHLORIDE [Concomitant]
     Dosage: 10 MEQ, QD
     Dates: start: 2012
  12. XARELTO [Concomitant]
     Dosage: 20 MG, QD
     Dates: start: 2013
  13. LOSARTAN [Concomitant]
     Dosage: 12.5 MG, UNK
     Dates: start: 201306
  14. LEVEMIR [Concomitant]
     Dosage: 10 U, QPM
     Dates: start: 201306
  15. NOVOLOG [Concomitant]
     Dosage: SLIDING SCALE, QD
     Dates: start: 201306

REACTIONS (4)
  - Dehydration [Unknown]
  - Urine output decreased [Unknown]
  - Dizziness [Unknown]
  - Weight increased [Unknown]
